FAERS Safety Report 15753334 (Version 1)
Quarter: 2018Q4

REPORT INFORMATION
  Report Type: Spontaneous
  Country: IT (occurrence: IT)
  Receive Date: 20181222
  Receipt Date: 20181222
  Transmission Date: 20190205
  Serious: Yes (Hospitalization)
  Sender: FDA-Public Use
  Company Number: IT-TEVA-2018-IT-989751

PATIENT
  Age: 83 Year
  Sex: Female
  Weight: 70 kg

DRUGS (7)
  1. RYTMONORM [Suspect]
     Active Substance: PROPAFENONE
     Indication: ARRHYTHMIA PROPHYLAXIS
     Dosage: 425 MILLIGRAM DAILY;
     Route: 065
     Dates: start: 20110101
  2. NEBIVOLOL. [Suspect]
     Active Substance: NEBIVOLOL
     Indication: HYPERTENSION
     Dosage: 2.5 MILLIGRAM DAILY;
     Route: 065
     Dates: start: 20181104
  3. TRITTICO 75 MG COMPRESSE A RILASCIO PROLUNGATO [Concomitant]
     Active Substance: TRAZODONE HYDROCHLORIDE
     Dosage: 75 MILLIGRAM DAILY;
     Dates: start: 20120101
  4. EUTIROX [Concomitant]
     Active Substance: LEVOTHYROXINE SODIUM
     Route: 065
  5. DEPAS [Concomitant]
     Active Substance: ETIZOLAM
     Dosage: 1 MILLIGRAM DAILY;
     Route: 065
  6. DULOXETINE HYDROCHLORIDE. [Suspect]
     Active Substance: DULOXETINE HYDROCHLORIDE
     Indication: DEPRESSION
     Dosage: 60 MILLIGRAM DAILY;
     Route: 065
     Dates: start: 20100101
  7. COAPROVEL 300 MG/12.5 MG FILM-COATED TABLETS [Concomitant]
     Indication: HYPERTENSION
     Route: 065

REACTIONS (6)
  - Asthenia [Not Recovered/Not Resolved]
  - Sinus arrest [Not Recovered/Not Resolved]
  - Dyspnoea [Not Recovered/Not Resolved]
  - Malaise [Not Recovered/Not Resolved]
  - Vertigo [Not Recovered/Not Resolved]
  - Sinus bradycardia [Not Recovered/Not Resolved]

NARRATIVE: CASE EVENT DATE: 20181120
